FAERS Safety Report 8221009-6 (Version None)
Quarter: 2012Q1

REPORT INFORMATION
  Report Type: 
  Country: None (occurrence: None)
  Receive Date: 20120320
  Receipt Date: 20120315
  Transmission Date: 20120608
  Serious: Yes (Hospitalization)
  Sender: FDA-Public Use
  Company Number: BR-PFIZER INC-2012068690

PATIENT
  Sex: Male

DRUGS (3)
  1. LYRICA [Suspect]
     Indication: DEPRESSION
     Dosage: 150 MG, 1X/DAY
     Route: 048
     Dates: start: 20120214, end: 20120215
  2. METOPROLOL SUCCINATE [Concomitant]
     Indication: ARRHYTHMIA
     Dosage: UNK
     Dates: start: 20120209
  3. LYRICA [Suspect]
     Indication: DIABETES MELLITUS

REACTIONS (3)
  - BALANCE DISORDER [None]
  - NERVE DEGENERATION [None]
  - MUSCULAR WEAKNESS [None]
